FAERS Safety Report 4457386-1 (Version None)
Quarter: 2004Q3

REPORT INFORMATION
  Report Type: 
  Country: None (occurrence: None)
  Receive Date: 20040922
  Receipt Date: 20040907
  Transmission Date: 20050211
  Serious: Yes (Disabling, Other)
  Sender: FDA-Public Use
  Company Number: USA040977429

PATIENT
  Age: 50 Year
  Sex: Female
  Weight: 145 kg

DRUGS (2)
  1. HUMALOG [Suspect]
     Dosage: 16 U/3 DAY
     Dates: start: 20000101
  2. LANTUS [Concomitant]

REACTIONS (5)
  - BLINDNESS [None]
  - BLOOD GLUCOSE INCREASED [None]
  - DIABETIC RETINOPATHY [None]
  - PHARMACEUTICAL PRODUCT COMPLAINT [None]
  - STRESS SYMPTOMS [None]
